FAERS Safety Report 21547130 (Version 2)
Quarter: 2023Q1

REPORT INFORMATION
  Report Type: Spontaneous
  Country: US (occurrence: US)
  Receive Date: 20221103
  Receipt Date: 20230201
  Transmission Date: 20230418
  Serious: No
  Sender: FDA-Public Use
  Company Number: US-BRISTOL-MYERS SQUIBB COMPANY-2022-131543

PATIENT
  Age: 69 Year
  Sex: Female

DRUGS (2)
  1. POMALYST [Suspect]
     Active Substance: POMALIDOMIDE
     Indication: Plasma cell myeloma
     Dosage: TAKE 1 CAPSULE BY MOUTH ONCE DAILY AT BEDTIME FOR 21 DAYS ON AND 7 DAYS OFF
     Route: 048
     Dates: start: 20221012
  2. POMALYST [Suspect]
     Active Substance: POMALIDOMIDE
     Dosage: TAKE 1 CAPSULE BY MOUTH ONCE DAILY AT BEDTIME FOR 21 DAYS ON AND 7 DAYS OFF
     Route: 048
     Dates: start: 202210

REACTIONS (6)
  - Rash [Unknown]
  - Pain in extremity [Unknown]
  - Pain [Unknown]
  - Skin exfoliation [Unknown]
  - Fatigue [Unknown]
  - Full blood count decreased [Unknown]
